FAERS Safety Report 7409305-3 (Version None)
Quarter: 2011Q2

REPORT INFORMATION
  Report Type: 
  Country: None (occurrence: None)
  Receive Date: 20110412
  Receipt Date: 20110405
  Transmission Date: 20111010
  Serious: Yes (Life-Threatening)
  Sender: FDA-Public Use
  Company Number: B0712146A

PATIENT
  Age: 67 Year
  Sex: Female

DRUGS (12)
  1. SERETIDE [Suspect]
  2. LEXOTAN [Concomitant]
  3. DELTACORTENE [Concomitant]
  4. CARDIAZOL [Concomitant]
  5. TENORMIN [Concomitant]
  6. ANAFRANIL [Concomitant]
  7. TELMISARTAN AND HYDROCHLOROTHIAZIDE [Concomitant]
  8. LAMICTAL [Suspect]
     Indication: DEPRESSION
     Dosage: 150MG PER DAY
     Route: 048
     Dates: start: 20100102, end: 20110225
  9. TAVOR [Suspect]
     Indication: DEPRESSION
     Dosage: 7.5MG PER DAY
     Route: 048
     Dates: start: 20110218, end: 20110225
  10. LASIX [Concomitant]
  11. ENTACT [Suspect]
     Indication: DEPRESSION
     Dosage: 10MGML PER DAY
     Dates: start: 20100101, end: 20110225
  12. PARACODINA [Concomitant]

REACTIONS (2)
  - COMA [None]
  - INAPPROPRIATE ANTIDIURETIC HORMONE SECRETION [None]
